FAERS Safety Report 7029754-5 (Version None)
Quarter: 2010Q4

REPORT INFORMATION
  Report Type: 
  Country: None (occurrence: None)
  Receive Date: 20101005
  Receipt Date: 20101005
  Transmission Date: 20110411
  Serious: Yes (Other)
  Sender: FDA-Public Use
  Company Number: None

PATIENT
  Age: 55 Year
  Sex: Female
  Weight: 99.7913 kg

DRUGS (1)
  1. DETROL LA [Suspect]
     Indication: INCONTINENCE
     Dosage: ONE DAILY PO
     Route: 048
     Dates: start: 20090929, end: 20100129

REACTIONS (1)
  - DYSGEUSIA [None]
